FAERS Safety Report 9209465 (Version 1)
Quarter: 2013Q1

REPORT INFORMATION
  Report Type: Spontaneous
  Country: US (occurrence: None)
  Receive Date: 20120820
  Receipt Date: 20120820
  Transmission Date: 20140127
  Serious: No
  Sender: FDA-Public Use
  Company Number: 1000030310

PATIENT
  Age: 25 Year
  Sex: Male

DRUGS (4)
  1. VIIBRYD (VILAZODONE) (10 MILLIGRAM, TABLETS) [Suspect]
     Indication: DEPRESSION
     Route: 048
     Dates: start: 2012, end: 2012
  2. VIIBRYD (VILAZODONE) (10 MILLIGRAM, TABLETS) [Suspect]
     Indication: ANXIETY
     Route: 048
     Dates: start: 2012, end: 2012
  3. VIIBRYD (VILAZODONE) (10 MILLIGRAM, TABLETS) [Suspect]
     Indication: BIPOLAR DISORDER
     Route: 048
     Dates: start: 2012, end: 2012
  4. ADDERAL (OBETROL) (OBETROL) [Concomitant]

REACTIONS (1)
  - Drug screen positive [None]
